FAERS Safety Report 8732998 (Version 2)
Quarter: 2012Q4

REPORT INFORMATION
  Report Type: Spontaneous
  Country: FR (occurrence: None)
  Receive Date: 20120802
  Receipt Date: 20120814
  Transmission Date: 20130627
  Serious: Yes (Hospitalization)
  Sender: FDA-Public Use
  Company Number: IMP_05946_2012

PATIENT
  Age: 49 Year

DRUGS (4)
  1. CHLOROQUINE PHOSPHATE [Suspect]
     Indication: SYSTEMIC LUPUS ERYTHEMATOSUS
     Dosage: DF
  2. CHLOROQUINE PHOSPHATE [Suspect]
     Indication: CUTANEOUS LUPUS ERYTHEMATOSUS
     Dosage: DF
  3. CHLOROQUINE PHOSPHATE [Suspect]
     Indication: SYSTEMIC LUPUS ERYTHEMATOSUS
  4. CHLOROQUINE PHOSPHATE [Suspect]
     Indication: CUTANEOUS LUPUS ERYTHEMATOSUS

REACTIONS (14)
  - Atrioventricular block complete [None]
  - Toxicity to various agents [None]
  - Cardio-respiratory arrest [None]
  - Abdominal pain [None]
  - Drug ineffective [None]
  - Thrombotic stroke [None]
  - Carotid artery thrombosis [None]
  - Peripheral arterial occlusive disease [None]
  - Convulsion [None]
  - Gastric ulcer [None]
  - Renal failure [None]
  - Nephropathy [None]
  - Microcytic anaemia [None]
  - Cardiotoxicity [None]
